FAERS Safety Report 8000521-9 (Version None)
Quarter: 2011Q4

REPORT INFORMATION
  Report Type: 
  Country: None (occurrence: None)
  Receive Date: 20111123
  Receipt Date: 20111006
  Transmission Date: 20120403
  Serious: No
  Sender: FDA-Public Use
  Company Number: 336718

PATIENT
  Age: 43 Year
  Sex: Male

DRUGS (4)
  1. PROZAC [Suspect]
  2. METFORMIN HCL [Suspect]
  3. GLIMEPIRIDE [Suspect]
  4. VICTOZA [Suspect]
     Indication: TYPE 2 DIABETES MELLITUS
     Dosage: SUBCUTANEOUS
     Route: 058
     Dates: start: 20110303

REACTIONS (1)
  - DIARRHOEA [None]
